FAERS Safety Report 8506146-0 (Version None)
Quarter: 2012Q3

REPORT INFORMATION
  Report Type: 
  Country: None (occurrence: None)
  Receive Date: 20120712
  Receipt Date: 20120704
  Transmission Date: 20120928
  Serious: Yes (Other)
  Sender: FDA-Public Use
  Company Number: DE-ROCHE-1084808

PATIENT
  Sex: Female

DRUGS (1)
  1. LUCENTIS [Suspect]
     Indication: AGE-RELATED MACULAR DEGENERATION
     Route: 050
     Dates: start: 20110601

REACTIONS (10)
  - DIARRHOEA [None]
  - BORRELIA INFECTION [None]
  - VITREOUS DISORDER [None]
  - EYE HAEMORRHAGE [None]
  - COLOUR BLINDNESS ACQUIRED [None]
  - NAUSEA [None]
  - METAMORPHOPSIA [None]
  - LOSS OF VISUAL CONTRAST SENSITIVITY [None]
  - DIPLOPIA [None]
  - EYE OEDEMA [None]
